FAERS Safety Report 6886182-0 (Version None)
Quarter: 2010Q3

REPORT INFORMATION
  Report Type: 
  Country: None (occurrence: None)
  Receive Date: 20100729
  Receipt Date: 20081209
  Transmission Date: 20110219
  Serious: Yes (Hospitalization, Other)
  Sender: FDA-Public Use
  Company Number: US-PFIZER INC-2008151093

PATIENT
  Sex: Male

DRUGS (2)
  1. CELEBREX [Suspect]
     Dosage: UNK
     Route: 048
     Dates: start: 20020101, end: 20050201
  2. BEXTRA [Suspect]
     Dosage: UNK
     Route: 048
     Dates: start: 20030401, end: 20050401

REACTIONS (1)
  - MYOCARDIAL INFARCTION [None]
